FAERS Safety Report 24087709 (Version 1)
Quarter: 2024Q3

REPORT INFORMATION
  Report Type: Spontaneous
  Country: IT (occurrence: IT)
  Receive Date: 20240715
  Receipt Date: 20240715
  Transmission Date: 20241017
  Serious: Yes (Death)
  Sender: NOVITIUM PHARMA
  Company Number: IT-NOVITIUMPHARMA-2024ITNVP01259

PATIENT
  Age: 63 Year
  Sex: Male

DRUGS (9)
  1. PREDNISONE [Suspect]
     Active Substance: PREDNISONE
     Indication: Primary cardiac lymphoma
  2. DEXAMETHASONE [Suspect]
     Active Substance: DEXAMETHASONE
     Indication: Immune effector cell-associated neurotoxicity syndrome
  3. RITUXIMAB [Concomitant]
     Active Substance: RITUXIMAB
     Indication: Immune effector cell-associated neurotoxicity syndrome
  4. RITUXIMAB [Concomitant]
     Active Substance: RITUXIMAB
     Indication: Primary cardiac lymphoma
  5. CYTARABINE [Concomitant]
     Active Substance: CYTARABINE
     Indication: Primary cardiac lymphoma
  6. OXALIPLATIN [Concomitant]
     Active Substance: OXALIPLATIN
     Indication: Primary cardiac lymphoma
  7. CYCLOPHOSPHAMIDE [Concomitant]
     Active Substance: CYCLOPHOSPHAMIDE
     Indication: Primary cardiac lymphoma
  8. VINCRISTINE [Concomitant]
     Active Substance: VINCRISTINE
     Indication: Primary cardiac lymphoma
  9. DOXORUBICIN [Concomitant]
     Active Substance: DOXORUBICIN
     Indication: Primary cardiac lymphoma

REACTIONS (2)
  - Rebound effect [Fatal]
  - Drug ineffective [Fatal]
